FAERS Safety Report 8022941-9 (Version None)
Quarter: 2012Q1

REPORT INFORMATION
  Report Type: 
  Country: None (occurrence: None)
  Receive Date: 20120104
  Receipt Date: 20111228
  Transmission Date: 20120608
  Serious: Yes (Hospitalization, Other)
  Sender: FDA-Public Use
  Company Number: PHHY2011US35053

PATIENT
  Sex: Female

DRUGS (2)
  1. AMANTADINE HCL [Concomitant]
     Indication: FATIGUE
     Dosage: 100 MG, BID
     Dates: start: 20110209
  2. GILENYA [Suspect]
     Indication: RELAPSING-REMITTING MULTIPLE SCLEROSIS
     Dosage: 0.5 MG, QD
     Route: 048
     Dates: start: 20110413, end: 20111213

REACTIONS (24)
  - SENSATION OF HEAVINESS [None]
  - ISCHAEMIC CEREBRAL INFARCTION [None]
  - COORDINATION ABNORMAL [None]
  - FIBRIN D DIMER INCREASED [None]
  - CEREBROVASCULAR ACCIDENT [None]
  - FATIGUE [None]
  - EOSINOPHIL COUNT DECREASED [None]
  - HYPOAESTHESIA [None]
  - NAUSEA [None]
  - PARAESTHESIA [None]
  - GASTROINTESTINAL PAIN [None]
  - LYMPHOCYTE COUNT DECREASED [None]
  - HEMIPARESIS [None]
  - MUSCULAR WEAKNESS [None]
  - SIMPLE PARTIAL SEIZURES [None]
  - MOVEMENT DISORDER [None]
  - GAIT DISTURBANCE [None]
  - SENSORY LOSS [None]
  - TREMOR [None]
  - BLOOD ALKALINE PHOSPHATASE DECREASED [None]
  - NEUTROPHIL COUNT INCREASED [None]
  - HEADACHE [None]
  - MOTOR DYSFUNCTION [None]
  - VIRAL INFECTION [None]
